FAERS Safety Report 5662066-0 (Version None)
Quarter: 2008Q1

REPORT INFORMATION
  Report Type: 
  Country: None (occurrence: None)
  Receive Date: 20080303
  Receipt Date: 20080219
  Transmission Date: 20080703
  Serious: Yes (Other)
  Sender: FDA-Public Use
  Company Number: CHNY2008AU00961

PATIENT
  Sex: Female

DRUGS (1)
  1. NICOTINELL TTS (NCH) (NICOTINE) TRANS-THERAPEUTIC-SYSTEM [Suspect]
     Indication: SMOKING CESSATION THERAPY
     Dosage: 21 MG, TRANSDERMAL
     Route: 062

REACTIONS (4)
  - BREAST PAIN [None]
  - OVERDOSE [None]
  - PLEURISY [None]
  - TREATMENT NONCOMPLIANCE [None]
